FAERS Safety Report 5879022-X (Version None)
Quarter: 2008Q3

REPORT INFORMATION
  Report Type: 
  Country: None (occurrence: None)
  Receive Date: 20080912
  Receipt Date: 20080903
  Transmission Date: 20090109
  Serious: Yes (Hospitalization)
  Sender: FDA-Public Use
  Company Number: JP-BRISTOL-MYERS SQUIBB COMPANY-14311484

PATIENT
  Age: 50 Year
  Sex: Female

DRUGS (2)
  1. ABILIFY [Suspect]
     Indication: SCHIZOPHRENIA
     Dosage: WITHDRAWN ON 6AUG08. 14MAY-22MAY08,12MG/D 23MAY08-06AUG08,18MG/D
     Route: 048
     Dates: start: 20080513, end: 20080513
  2. SELBEX [Concomitant]
     Dates: start: 20080520, end: 20080601

REACTIONS (3)
  - ANGER [None]
  - HALLUCINATION, AUDITORY [None]
  - INSOMNIA [None]
